FAERS Safety Report 19628283 (Version 2)
Quarter: 2022Q1

REPORT INFORMATION
  Report Type: Spontaneous
  Country: CA (occurrence: None)
  Receive Date: 20210729
  Receipt Date: 20220310
  Transmission Date: 20220424
  Serious: Yes (Other)
  Sender: FDA-Public Use
  Company Number: CA-ROCHE-2876803

PATIENT
  Age: 70 Year
  Sex: Male
  Weight: 80 kg

DRUGS (7)
  1. RITUXIMAB [Suspect]
     Active Substance: RITUXIMAB
     Indication: Granulomatosis with polyangiitis
     Route: 042
  2. ALLOPURINOL [Concomitant]
     Active Substance: ALLOPURINOL
     Route: 048
  3. ASPIRIN [Concomitant]
     Active Substance: ASPIRIN
  4. EZETIMIBE [Concomitant]
     Active Substance: EZETIMIBE
     Route: 048
  5. INSULIN NOS [Concomitant]
     Active Substance: INSULIN NOS
  6. RISEDRONATE SODIUM [Concomitant]
     Active Substance: RISEDRONATE SODIUM
  7. ROSUVASTATIN CALCIUM [Concomitant]
     Active Substance: ROSUVASTATIN CALCIUM

REACTIONS (10)
  - Intentional product use issue [Unknown]
  - Blood pressure increased [Unknown]
  - Glaucoma [Unknown]
  - Off label use [Unknown]
  - Condition aggravated [Unknown]
  - Limb injury [Unknown]
  - Ophthalmic herpes simplex [Unknown]
  - Oral herpes [Unknown]
  - Polyp [Unknown]
  - Scleritis [Unknown]
